FAERS Safety Report 8076998-X (Version None)
Quarter: 2012Q1

REPORT INFORMATION
  Report Type: 
  Country: None (occurrence: None)
  Receive Date: 20120127
  Receipt Date: 20120118
  Transmission Date: 20120608
  Serious: Yes (Life-Threatening)
  Sender: FDA-Public Use
  Company Number: JP-GLAXOSMITHKLINE-B0776531A

PATIENT
  Sex: Male
  Weight: 11 kg

DRUGS (13)
  1. PREDNISOLONE [Concomitant]
     Dosage: .2G PER DAY
     Route: 048
     Dates: start: 20110719
  2. PREDNISOLONE [Concomitant]
     Dosage: .8G PER DAY
     Route: 048
     Dates: start: 20110816, end: 20110819
  3. PREDNISOLONE [Concomitant]
     Dosage: .44G PER DAY
     Route: 048
     Dates: start: 20110823, end: 20110905
  4. PROMACTA [Suspect]
     Dosage: 12.5MG PER DAY
     Route: 048
     Dates: start: 20110802
  5. PREDNISOLONE [Concomitant]
     Dosage: .3G PER DAY
     Route: 048
     Dates: start: 20110705, end: 20110718
  6. PREDNISOLONE [Concomitant]
     Dosage: .55G PER DAY
     Route: 048
     Dates: start: 20110820, end: 20110822
  7. PREDNISOLONE [Concomitant]
     Dosage: 1.1G PER DAY
     Route: 048
     Dates: start: 20110812, end: 20110815
  8. PREDNISOLONE [Concomitant]
     Dosage: .25G PER DAY
     Route: 048
     Dates: start: 20110920
  9. PROMACTA [Suspect]
     Indication: IDIOPATHIC THROMBOCYTOPENIC PURPURA
     Dosage: 6.25MG PER DAY
     Route: 048
     Dates: start: 20110531, end: 20110801
  10. PREDNISOLONE [Concomitant]
     Indication: IDIOPATHIC THROMBOCYTOPENIC PURPURA
     Dosage: .44G PER DAY
     Route: 048
     Dates: end: 20110704
  11. IMMUNE GLOBULIN INTRAVENOUS (HUMAN) [Concomitant]
     Dosage: 12.5G PER DAY
     Route: 042
     Dates: start: 20111129, end: 20111129
  12. PREDNISOLONE [Concomitant]
     Dosage: .33G PER DAY
     Route: 048
     Dates: start: 20110906, end: 20110919
  13. IMMUNE GLOBULIN INTRAVENOUS (HUMAN) [Concomitant]
     Indication: IDIOPATHIC THROMBOCYTOPENIC PURPURA
     Dosage: 12.5G PER DAY
     Route: 042
     Dates: start: 20110812, end: 20110813

REACTIONS (1)
  - NEUROBLASTOMA [None]
